FAERS Safety Report 8622820-X (Version None)
Quarter: 2012Q3

REPORT INFORMATION
  Report Type: 
  Country: None (occurrence: None)
  Receive Date: 20120827
  Receipt Date: 20120820
  Transmission Date: 20120928
  Serious: Yes (Other)
  Sender: FDA-Public Use
  Company Number: MX-US-EMD SERONO, INC.-7156226

PATIENT
  Age: 12 Year
  Sex: Male

DRUGS (1)
  1. SAIZEN [Suspect]
     Indication: PRODUCT USED FOR UNKNOWN INDICATION
     Dates: start: 20120624

REACTIONS (3)
  - OSTEOCHONDROSIS [None]
  - FALL [None]
  - JOINT INJURY [None]
